FAERS Safety Report 16787238 (Version 2)
Quarter: 2019Q4

REPORT INFORMATION
  Report Type: Spontaneous
  Country: US (occurrence: US)
  Receive Date: 20190909
  Receipt Date: 20191001
  Transmission Date: 20200122
  Serious: Yes (Other)
  Sender: FDA-Public Use
  Company Number: US-COOPERSURGICAL, INC.-US-2019CPS002729

PATIENT
  Age: 21 Year
  Sex: Female
  Weight: 69.84 kg

DRUGS (1)
  1. PARAGARD T 380A [Suspect]
     Active Substance: COPPER
     Indication: CONTRACEPTION
     Dosage: UNK
     Route: 015
     Dates: start: 20190430

REACTIONS (6)
  - Ectopic pregnancy with contraceptive device [Not Recovered/Not Resolved]
  - Vaginal haemorrhage [Unknown]
  - Abdominal pain lower [Unknown]
  - Device dislocation [Unknown]
  - Drug ineffective [Recovered/Resolved]
  - Endometrial thickening [Unknown]

NARRATIVE: CASE EVENT DATE: 20190822
